FAERS Safety Report 7067290-0 (Version None)
Quarter: 2010Q4

REPORT INFORMATION
  Report Type: 
  Country: None (occurrence: None)
  Receive Date: 20101022
  Receipt Date: 20101022
  Transmission Date: 20110411
  Serious: Yes (Other)
  Sender: FDA-Public Use
  Company Number: None

PATIENT
  Age: 37 Year
  Sex: Female
  Weight: 55.7924 kg

DRUGS (1)
  1. INVANZ [Suspect]
     Indication: GASTROINTESTINAL DISORDER
     Dates: start: 20101010, end: 20101014

REACTIONS (1)
  - CONVULSION [None]
